FAERS Safety Report 15004603 (Version 1)
Quarter: 2018Q2

REPORT INFORMATION
  Report Type: Spontaneous
  Country: US (occurrence: US)
  Receive Date: 20180524
  Receipt Date: 20180524
  Transmission Date: 20180711
  Serious: Yes (Hospitalization)
  Sender: FDA-Public Use
  Company Number: None

PATIENT
  Age: 76 Year
  Sex: Male
  Weight: 99.45 kg

DRUGS (12)
  1. WARFARIN 4.5MG [Concomitant]
  2. EPLERENONE 25MG [Concomitant]
  3. ADVAIR 250-50MCG/ACT [Concomitant]
  4. GABAPENTIN 600MG [Concomitant]
     Active Substance: GABAPENTIN
  5. GLIPIZIDE 5MG [Concomitant]
     Active Substance: GLIPIZIDE
  6. FAMOTIDINE 20MG [Concomitant]
     Active Substance: FAMOTIDINE
  7. FUROSEMIDE 40MG [Concomitant]
     Active Substance: FUROSEMIDE
  8. ASPIRIN 81MG [Concomitant]
     Active Substance: ASPIRIN
  9. MULTIPLE VITAMIN [Concomitant]
     Active Substance: VITAMINS
  10. VICTOZA [Suspect]
     Active Substance: LIRAGLUTIDE
     Indication: TYPE 2 DIABETES MELLITUS
     Route: 058
     Dates: start: 20180402, end: 20180522
  11. ATORVASTATIN 40MG [Concomitant]
     Active Substance: ATORVASTATIN
  12. METOPROLOL 50MG [Concomitant]
     Active Substance: METOPROLOL

REACTIONS (9)
  - Abdominal pain [None]
  - Nausea [None]
  - Decreased appetite [None]
  - Gastric pneumatosis [None]
  - Diarrhoea [None]
  - Weight decreased [None]
  - Vomiting [None]
  - Portal venous gas [None]
  - Gastric mucosa erythema [None]
